FAERS Safety Report 5445858-2 (Version None)
Quarter: 2007Q3

REPORT INFORMATION
  Report Type: 
  Country: None (occurrence: None)
  Receive Date: 20070904
  Receipt Date: 20070821
  Transmission Date: 20080115
  Serious: Yes (Other)
  Sender: FDA-Public Use
  Company Number: 340002M07GBR

PATIENT
  Sex: Female

DRUGS (5)
  1. OVIDREL [Suspect]
  2. MENOTROPINS [Concomitant]
  3. BUSERELIN/00771601/ [Concomitant]
  4. PROPOFOL [Concomitant]
  5. NAFARELIN [Concomitant]

REACTIONS (2)
  - PANCREATITIS ACUTE [None]
  - POST PROCEDURAL COMPLICATION [None]
